FAERS Safety Report 18777229 (Version 1)
Quarter: 2021Q1

REPORT INFORMATION
  Report Type: Spontaneous
  Country: US (occurrence: US)
  Receive Date: 20210122
  Receipt Date: 20210122
  Transmission Date: 20210419
  Serious: Yes (Other)
  Sender: FDA-Public Use
  Company Number: US-JAZZ-2020-US-012724

PATIENT
  Age: 59 Year
  Sex: Male

DRUGS (1)
  1. ZEPZELCA [Suspect]
     Active Substance: LURBINECTEDIN
     Indication: BLADDER CANCER
     Dosage: 1 DOSE
     Route: 065

REACTIONS (2)
  - Off label use [Unknown]
  - Nausea [Unknown]
